FAERS Safety Report 22138721 (Version 4)
Quarter: 2025Q4

REPORT INFORMATION
  Report Type: Report from Study
  Country: EU (occurrence: EU)
  Receive Date: 20230327
  Receipt Date: 20251013
  Transmission Date: 20260117
  Serious: Yes (Death, Hospitalization)
  Sender: ABBVIE
  Company Number: EU-ABBVIE-4702276

PATIENT
  Age: 84 Year
  Sex: Female

DRUGS (1)
  1. RINVOQ [Suspect]
     Active Substance: UPADACITINIB
     Indication: Rheumatoid arthritis
     Route: 048
     Dates: start: 202108

REACTIONS (9)
  - Ventricular fibrillation [Fatal]
  - Pneumonia bacterial [Recovered/Resolved]
  - COVID-19 [Recovered/Resolved]
  - Panic attack [Recovered/Resolved]
  - Bacterial sepsis [Recovered/Resolved]
  - Atrial fibrillation [Recovered/Resolved]
  - Influenza [Recovered/Resolved]
  - Hypertension [Recovered/Resolved]
  - Cardiac disorder [Fatal]

NARRATIVE: CASE EVENT DATE: 20221222
